FAERS Safety Report 4957550-9 (Version None)
Quarter: 2006Q1

REPORT INFORMATION
  Report Type: 
  Country: None (occurrence: None)
  Receive Date: 20060330
  Receipt Date: 20060215
  Transmission Date: 20060701
  Serious: No
  Sender: FDA-Public Use
  Company Number: US-GLAXOSMITHKLINE-A0593874A

PATIENT
  Age: 71 Year
  Sex: Female

DRUGS (3)
  1. FLOVENT [Suspect]
     Indication: ASTHMA
     Dosage: 110MCG TWICE PER DAY
     Route: 055
  2. PREDNISONE [Concomitant]
  3. COMBIVENT [Concomitant]

REACTIONS (1)
  - BLOOD CORTISOL DECREASED [None]
